FAERS Safety Report 22202091 (Version 1)
Quarter: 2023Q2

REPORT INFORMATION
  Report Type: Other
  Country: None (occurrence: CN)
  Receive Date: 20230412
  Receipt Date: 20230412
  Transmission Date: 20230721
  Serious: Yes (Hospitalization, Other)
  Sender: FDA-Public Use
  Company Number: CN-Appco Pharma LLC-2140196

PATIENT
  Age: 52 Year
  Sex: Female

DRUGS (6)
  1. IRBESARTAN [Suspect]
     Active Substance: IRBESARTAN
     Indication: IgA nephropathy
     Route: 065
  2. FUROSEMIDE [Suspect]
     Active Substance: FUROSEMIDE
     Route: 065
  3. TOLVAPTAN [Suspect]
     Active Substance: TOLVAPTAN
     Route: 065
  4. ALBUMIN (HUMAN) [Suspect]
     Active Substance: ALBUMIN HUMAN
     Route: 042
  5. INSULIN NOS [Concomitant]
     Active Substance: INSULIN NOS
     Route: 065
  6. VALSARTAN [Concomitant]
     Active Substance: VALSARTAN
     Route: 065

REACTIONS (2)
  - Drug ineffective [Unknown]
  - Acute kidney injury [Recovered/Resolved]
